FAERS Safety Report 9239459 (Version 4)
Quarter: 2014Q1

REPORT INFORMATION
  Report Type: Report from Study
  Country: BR (occurrence: BR)
  Receive Date: 20130418
  Receipt Date: 20140227
  Transmission Date: 20141002
  Serious: Yes (Hospitalization, Other)
  Sender: FDA-Public Use
  Company Number: BR-ROCHE-1181959

PATIENT
  Sex: Female
  Weight: 49 kg

DRUGS (10)
  1. ACTEMRA [Suspect]
     Indication: RHEUMATOID ARTHRITIS
     Dosage: LATEST INFUSION ON 04/AUG/2013, LATEST INFUSION IN FEB/2014
     Route: 065
     Dates: start: 20130115
  2. NOVALGINA [Suspect]
     Indication: PRODUCT USED FOR UNKNOWN INDICATION
     Route: 065
  3. METFORMIN [Concomitant]
     Route: 065
  4. MELOXICAM [Concomitant]
     Indication: PAIN
  5. CYCLOBENZAPRINE [Concomitant]
     Indication: PAIN
     Route: 065
  6. LISADOR [Concomitant]
     Indication: PAIN
  7. FAMOTIDINE [Concomitant]
     Indication: GASTRIC DISORDER
  8. GLIFAGE [Concomitant]
     Indication: DIABETES MELLITUS
     Route: 065
  9. PROCIMAX [Concomitant]
  10. ATORVASTATIN [Concomitant]
     Route: 065

REACTIONS (16)
  - Osteoarthritis [Unknown]
  - Hypertension [Recovered/Resolved]
  - Tendonitis [Recovering/Resolving]
  - Bursitis [Recovering/Resolving]
  - Local swelling [Recovering/Resolving]
  - Pain in extremity [Recovering/Resolving]
  - Anxiety [Unknown]
  - Spinal pain [Not Recovered/Not Resolved]
  - Alopecia [Unknown]
  - Pain [Unknown]
  - Drug dose omission [Unknown]
  - Urinary tract infection [Unknown]
  - Syncope [Unknown]
  - Dizziness [Unknown]
  - Convulsion [Unknown]
  - Weight decreased [Not Recovered/Not Resolved]
